FAERS Safety Report 12668411 (Version 2)
Quarter: 2016Q3

REPORT INFORMATION
  Report Type: Report from Study
  Country: US (occurrence: US)
  Receive Date: 20160819
  Receipt Date: 20160919
  Transmission Date: 20161109
  Serious: Yes (Other)
  Sender: FDA-Public Use
  Company Number: US-ABBVIE-16K-163-1702252-00

PATIENT
  Age: 59 Year
  Sex: Female
  Weight: 84.44 kg

DRUGS (1)
  1. HUMIRA [Suspect]
     Active Substance: ADALIMUMAB
     Indication: PRODUCT USED FOR UNKNOWN INDICATION
     Route: 058
     Dates: start: 2011

REACTIONS (2)
  - Cardiac murmur [Not Recovered/Not Resolved]
  - Heart valve incompetence [Unknown]

NARRATIVE: CASE EVENT DATE: 201608
